FAERS Safety Report 7089810-2 (Version None)
Quarter: 2010Q4

REPORT INFORMATION
  Report Type: 
  Country: None (occurrence: None)
  Receive Date: 20101108
  Receipt Date: 20101020
  Transmission Date: 20110411
  Serious: Yes (Hospitalization)
  Sender: FDA-Public Use
  Company Number: BR-AMGEN-BRASP2010001038

PATIENT

DRUGS (3)
  1. ENBREL [Suspect]
     Indication: JUVENILE ARTHRITIS
     Dosage: 50 MG
     Route: 058
     Dates: start: 20100201, end: 20100801
  2. PREDNISOLONE [Concomitant]
  3. METHOTREXATE [Concomitant]

REACTIONS (2)
  - GASTROINTESTINAL INFECTION [None]
  - WEIGHT DECREASED [None]
